FAERS Safety Report 8108856 (Version 9)
Quarter: 2012Q4

REPORT INFORMATION
  Report Type: Report from Study
  Country: CA (occurrence: CA)
  Receive Date: 20110826
  Receipt Date: 20121207
  Transmission Date: 20130627
  Serious: Yes (Other)
  Sender: FDA-Public Use
  Company Number: CA-ABBOTT-11P-028-0847932-03

PATIENT
  Age: 33 Year
  Sex: Male
  Weight: 59 kg

DRUGS (32)
  1. HUMIRA [Suspect]
     Indication: CROHN^S DISEASE
     Dosage: once
     Route: 058
     Dates: start: 20080408, end: 20080408
  2. HUMIRA [Suspect]
     Dosage: (week 2)
     Route: 058
  3. HUMIRA [Suspect]
     Route: 058
     Dates: end: 20110803
  4. HUMIRA [Suspect]
     Route: 058
     Dates: start: 20110819, end: 20111102
  5. HUMIRA [Suspect]
     Route: 058
     Dates: start: 20111116, end: 20111230
  6. VANCOMYCINE [Concomitant]
     Indication: CHOLANGITIS
     Route: 042
     Dates: start: 20110716
  7. PREDNISONE [Concomitant]
     Indication: DRUG DEPENDENCE
     Dates: start: 20110324
  8. PREDNISONE [Concomitant]
     Indication: CROHN^S DISEASE
     Dosage: In slow tapering
     Dates: start: 20080125, end: 20090127
  9. PREDNISONE [Concomitant]
     Dates: start: 20090128, end: 20090506
  10. PREDNISONE [Concomitant]
     Dates: start: 20090507, end: 201009
  11. PREDNISONE [Concomitant]
     Route: 048
     Dates: start: 201009, end: 201010
  12. PANTOLOC [Concomitant]
     Indication: GASTROINTESTINAL HAEMORRHAGE
     Route: 048
     Dates: start: 20101019
  13. PANTOLOC [Concomitant]
     Indication: PROPHYLAXIS AGAINST GASTROINTESTINAL ULCER
  14. CARBOCAL D [Concomitant]
     Indication: STEROID THERAPY
     Dates: start: 199905
  15. CARBOCAL D [Concomitant]
     Indication: OSTEOPOROSIS PROPHYLAXIS
  16. IMURAN [Concomitant]
     Indication: CROHN^S DISEASE
     Dates: start: 199508
  17. IMURAN [Concomitant]
     Indication: PROPHYLAXIS AGAINST TRANSPLANT REJECTION
  18. NEORAL [Concomitant]
     Indication: PROPHYLAXIS AGAINST TRANSPLANT REJECTION
     Dates: start: 199508, end: 20091002
  19. NEORAL [Concomitant]
     Dates: start: 20091003
  20. NEORAL [Concomitant]
     Dosage: At night
     Dates: start: 20091003
  21. PALAFER [Concomitant]
     Indication: ANAEMIA
     Dates: start: 200812
  22. APO-NAPROSYN [Concomitant]
     Indication: ARTHRALGIA
     Dosage: Twice a day but as needed
     Dates: start: 200811
  23. TYLENOL ARTHRITIS [Concomitant]
     Indication: ARTHRALGIA
     Dates: start: 200908
  24. TYLENOL EXTRA STRENGTH [Concomitant]
     Indication: HEADACHE
     Dates: start: 199506
  25. TYLENOL [Concomitant]
     Indication: PYREXIA
     Dosage: 2 tablets once
     Route: 048
     Dates: start: 20110716, end: 20110716
  26. GRAVOL [Concomitant]
     Indication: NAUSEA
     Route: 042
     Dates: start: 20110716, end: 20110716
  27. MAGNESIUM SULFATE [Concomitant]
     Indication: HYPOMAGNESAEMIA
     Route: 042
     Dates: start: 20110717, end: 20110717
  28. AVALOX [Concomitant]
     Indication: CHOLANGITIS
     Route: 042
     Dates: start: 20110716
  29. PEGLYTE [Concomitant]
     Indication: BOWEL PREPARATION
     Route: 048
     Dates: start: 20110724, end: 20110724
  30. PEGLYTE [Concomitant]
     Indication: COLONOSCOPY
  31. BISACODYL [Concomitant]
     Indication: BOWEL PREPARATION
     Route: 048
     Dates: start: 20110724, end: 20110724
  32. BISACODYL [Concomitant]
     Indication: COLONOSCOPY

REACTIONS (1)
  - Leiomyoma [Recovered/Resolved]
